FAERS Safety Report 23267659 (Version 2)
Quarter: 2024Q2

REPORT INFORMATION
  Report Type: Spontaneous
  Country: FR (occurrence: FR)
  Receive Date: 20231206
  Receipt Date: 20240417
  Transmission Date: 20240715
  Serious: Yes (Other)
  Sender: FDA-Public Use
  Company Number: None

PATIENT

DRUGS (3)
  1. VYXEOS [Suspect]
     Active Substance: CYTARABINE\DAUNORUBICIN
     Indication: Myelodysplastic syndrome
     Dosage: 80 MILLIGRAM
     Route: 042
     Dates: start: 20231115, end: 20231119
  2. NOXAFIL [Concomitant]
     Active Substance: POSACONAZOLE
     Indication: Myelodysplastic syndrome
     Dosage: 300 MILLIGRAM, QD
     Route: 048
     Dates: start: 20231115
  3. VALACYCLOVIR HYDROCHLORIDE [Concomitant]
     Active Substance: VALACYCLOVIR HYDROCHLORIDE
     Indication: Myelodysplastic syndrome
     Dosage: 500 MILLIGRAM, QD
     Route: 048
     Dates: start: 20231115

REACTIONS (2)
  - Folliculitis [Not Recovered/Not Resolved]
  - Rash maculo-papular [Recovered/Resolved]

NARRATIVE: CASE EVENT DATE: 20231120
